FAERS Safety Report 9562142 (Version 4)
Quarter: 2017Q1

REPORT INFORMATION
  Report Type: Spontaneous
  Country: FR (occurrence: FR)
  Receive Date: 20130927
  Receipt Date: 20170123
  Transmission Date: 20170429
  Serious: Yes (Hospitalization, Other)
  Sender: FDA-Public Use
  Company Number: FR-TEVA-432516USA

PATIENT
  Age: 83 Year
  Sex: Female

DRUGS (15)
  1. METHYLPREDNISOLONE. [Suspect]
     Active Substance: METHYLPREDNISOLONE
     Indication: B-CELL LYMPHOMA
     Dosage: UNKNOWN/D
     Dates: start: 201307
  2. ATARAX [Concomitant]
     Active Substance: HYDROXYZINE HYDROCHLORIDE
     Indication: PRODUCT USED FOR UNKNOWN INDICATION
     Route: 065
  3. METHYLPREDNISOLONE. [Suspect]
     Active Substance: METHYLPREDNISOLONE
     Indication: NON-HODGKIN^S LYMPHOMA
  4. BACTRIM [Suspect]
     Active Substance: SULFAMETHOXAZOLE\TRIMETHOPRIM
     Indication: PRODUCT USED FOR UNKNOWN INDICATION
     Dosage: THREE TIMES A WEEK
     Route: 048
     Dates: start: 20130704, end: 20130819
  5. MABTHERA [Suspect]
     Active Substance: RITUXIMAB
     Indication: B-CELL LYMPHOMA
     Route: 042
     Dates: start: 20130703
  6. LASILIX [Concomitant]
     Active Substance: FUROSEMIDE
     Dates: start: 20130801
  7. AERIUS [Concomitant]
     Active Substance: DESLORATADINE
     Indication: FACE OEDEMA
     Route: 065
     Dates: start: 20130802
  8. ZINNAT [Suspect]
     Active Substance: CEFUROXIME AXETIL
     Indication: PYREXIA
     Dosage: UNKNOWN/D
     Dates: start: 20130818
  9. MABTHERA [Suspect]
     Active Substance: RITUXIMAB
     Indication: NON-HODGKIN^S LYMPHOMA
     Route: 042
     Dates: start: 20130731
  10. LEVACT [Suspect]
     Active Substance: BENDAMUSTINE HYDROCHLORIDE
     Indication: NON-HODGKIN^S LYMPHOMA
     Dosage: TWICE A MONTH
     Route: 042
     Dates: start: 20130731, end: 20130801
  11. CIFLOX [Suspect]
     Active Substance: CIPROFLOXACIN
     Indication: PYREXIA
     Dosage: UID/QD
     Route: 048
     Dates: start: 20130818, end: 20130819
  12. LASILIX [Concomitant]
     Active Substance: FUROSEMIDE
     Indication: PRODUCT USED FOR UNKNOWN INDICATION
  13. LEVACT [Suspect]
     Active Substance: BENDAMUSTINE HYDROCHLORIDE
     Indication: B-CELL LYMPHOMA
     Dosage: 6 MG/M2 DAILY; TWICE A MONTH
     Route: 042
     Dates: start: 20130703
  14. MOTILIUM [Suspect]
     Active Substance: DOMPERIDONE
     Indication: PRODUCT USED FOR UNKNOWN INDICATION
     Dosage: 2 DOSAGE FORMS DAILY;
     Dates: start: 20130814, end: 20130815
  15. TAGAMET [Concomitant]
     Active Substance: CIMETIDINE
     Indication: PRODUCT USED FOR UNKNOWN INDICATION

REACTIONS (4)
  - Pancytopenia [Recovering/Resolving]
  - Prescribed underdose [Unknown]
  - Toxic skin eruption [Recovered/Resolved]
  - Febrile neutropenia [Recovering/Resolving]

NARRATIVE: CASE EVENT DATE: 20130816
